FAERS Safety Report 8499296-9 (Version None)
Quarter: 2012Q3

REPORT INFORMATION
  Report Type: 
  Country: None (occurrence: None)
  Receive Date: 20120710
  Receipt Date: 20120706
  Transmission Date: 20120928
  Serious: Yes (Death)
  Sender: FDA-Public Use
  Company Number: PHHY2011IN107464

PATIENT
  Sex: Female

DRUGS (2)
  1. IMATINIB MESYLATE [Suspect]
     Indication: CHRONIC MYELOID LEUKAEMIA
     Dosage: 400 MG,
  2. IMATINIB MESYLATE [Suspect]
     Dosage: 800 MG,

REACTIONS (2)
  - DEATH [None]
  - DRUG INEFFECTIVE [None]
